FAERS Safety Report 7757230-0 (Version None)
Quarter: 2011Q3

REPORT INFORMATION
  Report Type: 
  Country: None (occurrence: None)
  Receive Date: 20110916
  Receipt Date: 20110912
  Transmission Date: 20111222
  Serious: Yes (Other)
  Sender: FDA-Public Use
  Company Number: US-ALLERGAN-1112075US

PATIENT
  Age: 70 Year
  Sex: Female

DRUGS (1)
  1. BOTULINUM TOXIN TYPE A [Suspect]
     Indication: BLEPHAROSPASM
     Dosage: UNK
     Route: 030
     Dates: start: 20110726, end: 20110726

REACTIONS (6)
  - DYSPNOEA [None]
  - DYSPHONIA [None]
  - DYSPHAGIA [None]
  - SPEECH DISORDER [None]
  - LARYNGEAL DISORDER [None]
  - WHEEZING [None]
